FAERS Safety Report 19310407 (Version 1)
Quarter: 2021Q2

REPORT INFORMATION
  Report Type: Spontaneous
  Country: KR (occurrence: KR)
  Receive Date: 20210526
  Receipt Date: 20210526
  Transmission Date: 20210717
  Serious: Yes (Hospitalization)
  Sender: FDA-Public Use
  Company Number: KR-GLAXOSMITHKLINE-KR2021APC108001

PATIENT
  Sex: Male

DRUGS (2)
  1. LAMIVUDINE HBV [Suspect]
     Active Substance: LAMIVUDINE
     Indication: PRODUCT USED FOR UNKNOWN INDICATION
     Dosage: UNK UNK, 1D
     Route: 048
     Dates: start: 20050720
  2. HEPSERA [Suspect]
     Active Substance: ADEFOVIR DIPIVOXIL
     Indication: PRODUCT USED FOR UNKNOWN INDICATION
     Dosage: 10 MG, 1D
     Route: 048
     Dates: start: 20100906

REACTIONS (1)
  - Adenoma benign [Recovered/Resolved]

NARRATIVE: CASE EVENT DATE: 20111114
